FAERS Safety Report 17495547 (Version 2)
Quarter: 2020Q1

REPORT INFORMATION
  Report Type: Spontaneous
  Country: US (occurrence: US)
  Receive Date: 20200303
  Receipt Date: 20200303
  Transmission Date: 20200409
  Serious: Yes (Other)
  Sender: FDA-Public Use
  Company Number: US-GILEAD-2020-0453200

PATIENT
  Age: 52 Year
  Sex: Male

DRUGS (19)
  1. GABAPENTIN. [Concomitant]
     Active Substance: GABAPENTIN
     Dosage: 300MG-TAKE 4 CAPS 3 TIMES A DAY
  2. BUSPIRONE [Concomitant]
     Active Substance: BUSPIRONE HYDROCHLORIDE
     Dosage: 10 MG- TAKE 1 TABLET 3 TIMES A DAY
  3. ALBUTEROL [SALBUTAMOL] [Concomitant]
     Active Substance: ALBUTEROL
     Indication: DYSPNOEA
     Dosage: 2000 IU ONCE A DAY AS NEEDED
  4. TESTOSTERONE. [Concomitant]
     Active Substance: TESTOSTERONE
     Dosage: 200 MG ONCE A WEEK 3 WEEKS IN A ROW, THEN 1 WEEK OFF (INJECTABLE)
  5. OMEPRAZOLE. [Concomitant]
     Active Substance: OMEPRAZOLE
     Dosage: 40 MG- TAKE 1 CAPSULE 2 TIMES A DAY
  6. CYCLOBENZAPRINE. [Concomitant]
     Active Substance: CYCLOBENZAPRINE
     Dosage: 10 MG- TAKE 1 TABLET 3 TIMES A DAY
  7. FLAXSEED OIL [LINUM USITATISSIMUM OIL] [Concomitant]
     Dosage: 1000MG ONCE A DAY
  8. MAGNESIUM OXIDE. [Concomitant]
     Active Substance: MAGNESIUM OXIDE
     Dosage: UNK
     Dates: end: 20200227
  9. CALCIUM CARBONATE. [Concomitant]
     Active Substance: CALCIUM CARBONATE
     Dosage: UNK
     Dates: end: 20200227
  10. GLUCOSAMINE [Concomitant]
     Active Substance: GLUCOSAMINE
     Dosage: 500 MG-TAKE 1 TABLET 3 TIMES A DAY
  11. LISINOPRIL. [Concomitant]
     Active Substance: LISINOPRIL
     Dosage: 10 MG- TAKE 1 TABLET ONCE A DAY
  12. ATORVASTATIN [Concomitant]
     Active Substance: ATORVASTATIN
     Dosage: 40 MG- TAKE 1 TABLET ONCE A DAY
  13. CELEBREX [Concomitant]
     Active Substance: CELECOXIB
     Dosage: 200 MG-TAKE 1 CAPSULE ONCE A DAY
  14. METFORMIN [Concomitant]
     Active Substance: METFORMIN HYDROCHLORIDE
     Dosage: 1000 MG-TAKE 1 TABLET TIMES A DAY
  15. VITAMIN B12 [VITAMIN B12 NOS] [Concomitant]
     Active Substance: CYANOCOBALAMIN
     Dosage: 500 MCG ONCE A DAY
  16. BIKTARVY [Suspect]
     Active Substance: BICTEGRAVIR SODIUM\EMTRICITABINE\TENOFOVIR ALAFENAMIDE FUMARATE
     Indication: HIV INFECTION
     Dosage: HAS BEEN ON FOR 1 YEAR
     Route: 065
  17. FISH OIL OMEGA 3 [Concomitant]
     Active Substance: FISH OIL
     Dosage: 1200 -TAKE 1 CAPSULE ONCE A DAY
  18. ACETAMINOPHEN. [Concomitant]
     Active Substance: ACETAMINOPHEN
     Dosage: 650 MG-TAKE 2 TABLETS 3 TIMES A DAY
  19. VITAMIN D3 [Concomitant]
     Active Substance: CHOLECALCIFEROL
     Dosage: 2000 IU ONCE A DAY

REACTIONS (1)
  - T-lymphocyte count decreased [Not Recovered/Not Resolved]
